FAERS Safety Report 6857889-6 (Version None)
Quarter: 2010Q3

REPORT INFORMATION
  Report Type: 
  Country: None (occurrence: None)
  Receive Date: 20100719
  Receipt Date: 20080129
  Transmission Date: 20110219
  Serious: Yes (Other)
  Sender: FDA-Public Use
  Company Number: US-PFIZER INC-2008009620

PATIENT
  Sex: Female
  Weight: 181.4 kg

DRUGS (5)
  1. CHANTIX [Suspect]
     Indication: SMOKING CESSATION THERAPY
     Dates: start: 20080122
  2. PROVENTIL GENTLEHALER [Concomitant]
  3. ANTI-ASTHMATICS [Concomitant]
  4. THEOPHYLLINE [Concomitant]
  5. EFFEXOR XR [Concomitant]

REACTIONS (2)
  - DIZZINESS [None]
  - LOSS OF CONSCIOUSNESS [None]
